FAERS Safety Report 12372747 (Version 1)
Quarter: 2016Q2

REPORT INFORMATION
  Report Type: Report from Study
  Country: US (occurrence: US)
  Receive Date: 20160516
  Receipt Date: 20160516
  Transmission Date: 20160815
  Serious: Yes (Death)
  Sender: FDA-Public Use
  Company Number: US-BAYER-2016-089522

PATIENT

DRUGS (2)
  1. CEFEPIME [Concomitant]
     Active Substance: CEFEPIME HYDROCHLORIDE
     Indication: STREPTOCOCCAL INFECTION
     Dosage: UNK
  2. CIPROFLOXACIN. [Suspect]
     Active Substance: CIPROFLOXACIN
     Indication: STREPTOCOCCAL INFECTION
     Dosage: UNK

REACTIONS (3)
  - Pleural effusion [Fatal]
  - Empyema [Fatal]
  - Treatment failure [None]
